FAERS Safety Report 9722437 (Version 1)
Quarter: 2013Q4

REPORT INFORMATION
  Report Type: Spontaneous
  Country: US (occurrence: None)
  Receive Date: 20131127
  Receipt Date: 20131127
  Transmission Date: 20140711
  Serious: Yes (Death)
  Sender: FDA-Public Use
  Company Number: None

PATIENT
  Age: 57 Year
  Sex: Male

DRUGS (1)
  1. NEXAVAR 200 MG [Suspect]
     Indication: HEPATIC CANCER
     Route: 048
     Dates: start: 20131109

REACTIONS (1)
  - Death [None]
